FAERS Safety Report 6176059-0 (Version None)
Quarter: 2009Q2

REPORT INFORMATION
  Report Type: 
  Country: None (occurrence: None)
  Receive Date: 20090501
  Receipt Date: 20090411
  Transmission Date: 20091009
  Serious: Yes (Hospitalization)
  Sender: FDA-Public Use
  Company Number: US-PFIZER INC-2009189292

PATIENT
  Sex: Male

DRUGS (12)
  1. MARAVIROC [Suspect]
     Indication: HIV INFECTION
     Dosage: 300 MG, 2X/DAY
     Route: 048
     Dates: start: 20051018
  2. TRUVADA [Concomitant]
     Dosage: UNK
     Route: 048
     Dates: start: 20051018
  3. ABACAVIR [Concomitant]
     Dosage: UNK
     Route: 048
     Dates: start: 20051018
  4. TIPRANAVIR [Concomitant]
     Dosage: UNK
     Route: 048
     Dates: start: 20051018
  5. RITONAVIR [Concomitant]
     Dosage: UNK
     Route: 048
     Dates: start: 20051018
  6. MONTELUKAST SODIUM [Concomitant]
     Dosage: UNK
     Route: 048
     Dates: start: 20040801
  7. ALBUTEROL [Concomitant]
     Dosage: UNK
     Route: 055
     Dates: start: 20050101
  8. BUPROPION [Concomitant]
     Dosage: UNK
     Route: 048
     Dates: start: 20040801
  9. NORVASC [Concomitant]
     Dosage: UNK
     Route: 048
     Dates: start: 20010301
  10. MEPRON [Concomitant]
     Dosage: UNK
     Route: 048
     Dates: start: 19940101
  11. ALLEGRA [Concomitant]
     Dosage: UNK
     Route: 048
     Dates: start: 20040601
  12. VIDEX [Concomitant]
     Dosage: UNK
     Route: 048
     Dates: start: 20051018

REACTIONS (1)
  - PNEUMONIA [None]
